FAERS Safety Report 7589678-1 (Version None)
Quarter: 2011Q3

REPORT INFORMATION
  Report Type: 
  Country: None (occurrence: None)
  Receive Date: 20110705
  Receipt Date: 20110621
  Transmission Date: 20111222
  Serious: Yes (Other)
  Sender: FDA-Public Use
  Company Number: CA-US-EMD SERONO, INC.-230112M09CAN

PATIENT
  Sex: Male

DRUGS (7)
  1. REBIF [Suspect]
     Indication: MULTIPLE SCLEROSIS
     Route: 058
     Dates: start: 20090810, end: 20101001
  2. LISINOPRIL [Concomitant]
  3. ASPIRIN [Concomitant]
  4. ADVIL LIQUI-GELS [Concomitant]
  5. ALLOPURINOL [Concomitant]
     Indication: GOUT
  6. NORVASC [Concomitant]
  7. HYDROCHLOROTHIAZIDE [Concomitant]

REACTIONS (5)
  - NIGHT SWEATS [None]
  - FATIGUE [None]
  - SKIN INFECTION [None]
  - INJECTION SITE ERYTHEMA [None]
  - KERATOACANTHOMA [None]
